FAERS Safety Report 16693801 (Version 3)
Quarter: 2019Q3

REPORT INFORMATION
  Report Type: Report from Study
  Country: US (occurrence: US)
  Receive Date: 20190812
  Receipt Date: 20190826
  Transmission Date: 20191004
  Serious: Yes (Hospitalization)
  Sender: FDA-Public Use
  Company Number: US-MALLINCKRODT-T201905301

PATIENT
  Age: 1 Year
  Sex: Female
  Weight: 8 kg

DRUGS (2)
  1. REPOSITORY CORTICOTROPIN INJECTION [Suspect]
     Active Substance: CORTICOTROPIN
     Indication: INFANTILE SPASMS
     Dosage: 0.15 ML OR 12 UNITS ONCE A DAY
     Route: 065
     Dates: start: 20190724, end: 2019
  2. REPOSITORY CORTICOTROPIN INJECTION [Suspect]
     Active Substance: CORTICOTROPIN
     Dosage: EARLY WEANING DOSE, UNK
     Route: 065
     Dates: start: 2019, end: 20190817

REACTIONS (5)
  - Injection site bruising [Not Recovered/Not Resolved]
  - Muscular weakness [Unknown]
  - Lethargy [Unknown]
  - Heart rate decreased [Recovering/Resolving]
  - Wrong technique in product usage process [Not Recovered/Not Resolved]

NARRATIVE: CASE EVENT DATE: 2019
